FAERS Safety Report 7580045-3 (Version None)
Quarter: 2011Q2

REPORT INFORMATION
  Report Type: 
  Country: None (occurrence: None)
  Receive Date: 20110629
  Receipt Date: 20110620
  Transmission Date: 20111010
  Serious: Yes (Other)
  Sender: FDA-Public Use
  Company Number: US-ASTRAZENECA-2011SE34489

PATIENT
  Sex: Female

DRUGS (3)
  1. PREVACID [Concomitant]
  2. NEXIUM [Suspect]
     Route: 048
  3. ACIPHEX [Concomitant]

REACTIONS (1)
  - INTESTINAL OBSTRUCTION [None]
